FAERS Safety Report 9209403 (Version 1)
Quarter: 2013Q2

REPORT INFORMATION
  Report Type: Spontaneous
  Country: US (occurrence: None)
  Receive Date: 20130403
  Receipt Date: 20130403
  Transmission Date: 20140414
  Serious: Yes (Other)
  Sender: FDA-Public Use
  Company Number: None

PATIENT
  Sex: Female
  Weight: 99.79 kg

DRUGS (2)
  1. ZITHROMAX - GENERIC FOR AZITHROMICAN [Suspect]
     Indication: EAR INFECTION
     Dosage: 250 MG 2 THE FIRST DAY 1X EVERY DAY FOR 5 DAY
     Dates: start: 20130215, end: 20130220
  2. ZITHROMAX - GENERIC FOR AZITHROMICAN [Suspect]
     Indication: NASOPHARYNGITIS
     Dosage: 250 MG 2 THE FIRST DAY 1X EVERY DAY FOR 5 DAY
     Dates: start: 20130215, end: 20130220

REACTIONS (4)
  - Product substitution issue [None]
  - Abdominal pain upper [None]
  - Abdominal pain [None]
  - Drug ineffective [None]
